FAERS Safety Report 16714864 (Version 1)
Quarter: 2019Q3

REPORT INFORMATION
  Report Type: Report from Study
  Country: CN (occurrence: CN)
  Receive Date: 20190819
  Receipt Date: 20190819
  Transmission Date: 20191005
  Serious: Yes (Other)
  Sender: FDA-Public Use
  Company Number: CN-ROCHE-2375801

PATIENT
  Sex: Female

DRUGS (1)
  1. BEVACIZUMAB. [Suspect]
     Active Substance: BEVACIZUMAB
     Indication: CERVIX CARCINOMA
     Route: 042

REACTIONS (10)
  - Off label use [Unknown]
  - Bone marrow failure [Unknown]
  - Intentional product use issue [Unknown]
  - White blood cell count decreased [Unknown]
  - Platelet count decreased [Unknown]
  - Nausea [Unknown]
  - Alopecia [Unknown]
  - Renal impairment [Unknown]
  - Hepatic function abnormal [Unknown]
  - Vomiting [Unknown]
